FAERS Safety Report 6737317-1 (Version None)
Quarter: 2010Q2

REPORT INFORMATION
  Report Type: 
  Country: None (occurrence: None)
  Receive Date: 20100524
  Receipt Date: 20100514
  Transmission Date: 20101027
  Serious: No
  Sender: FDA-Public Use
  Company Number: 2010BI001360

PATIENT
  Sex: Female

DRUGS (2)
  1. TYSABRI [Suspect]
     Indication: MULTIPLE SCLEROSIS
     Route: 042
     Dates: start: 20080828
  2. SYNTHROID [Concomitant]
     Indication: THYROID DISORDER
     Dates: end: 20080801

REACTIONS (11)
  - ALOPECIA [None]
  - DYSARTHRIA [None]
  - DYSKINESIA [None]
  - EYELID PTOSIS [None]
  - FALL [None]
  - PAIN IN EXTREMITY [None]
  - SCRATCH [None]
  - THYROID DISORDER [None]
  - TREMOR [None]
  - VISION BLURRED [None]
  - VISUAL ACUITY REDUCED [None]
